FAERS Safety Report 6728438-8 (Version None)
Quarter: 2010Q2

REPORT INFORMATION
  Report Type: 
  Country: None (occurrence: None)
  Receive Date: 20100517
  Receipt Date: 20100504
  Transmission Date: 20101027
  Serious: Yes (Other)
  Sender: FDA-Public Use
  Company Number: US-ELI_LILLY_AND_COMPANY-US201003001942

PATIENT
  Sex: Male

DRUGS (3)
  1. EFFIENT [Suspect]
     Indication: PERCUTANEOUS CORONARY INTERVENTION
     Dosage: 60 MG, LOADING DOSE
     Dates: start: 20100120, end: 20100101
  2. EFFIENT [Suspect]
     Dosage: 10 MG, DAILY (1/D)
     Dates: start: 20100101, end: 20100122
  3. ASPIRIN [Concomitant]

REACTIONS (5)
  - GASTRIC ULCER [None]
  - HAEMOPTYSIS [None]
  - SUBDURAL HAEMATOMA [None]
  - UPPER GASTROINTESTINAL HAEMORRHAGE [None]
  - VASCULAR PSEUDOANEURYSM [None]
